FAERS Safety Report 7095357-X (Version None)
Quarter: 2010Q4

REPORT INFORMATION
  Report Type: 
  Country: None (occurrence: None)
  Receive Date: 20101111
  Receipt Date: 20101102
  Transmission Date: 20110411
  Serious: Yes (Other)
  Sender: FDA-Public Use
  Company Number: GB-US-EMD SERONO, INC.-7012990

PATIENT
  Sex: Female

DRUGS (4)
  1. REBIF [Suspect]
     Indication: MULTIPLE SCLEROSIS
     Dates: start: 20100101, end: 20100601
  2. REBIF [Suspect]
     Dates: start: 20100601, end: 20100101
  3. SYMBICORT [Concomitant]
  4. SYMBICORT [Concomitant]
     Dates: start: 20100701

REACTIONS (1)
  - ASTHMA [None]
